FAERS Safety Report 18957744 (Version 1)
Quarter: 2021Q1

REPORT INFORMATION
  Report Type: Spontaneous
  Country: US (occurrence: US)
  Receive Date: 20210301
  Receipt Date: 20210301
  Transmission Date: 20210420
  Serious: No
  Sender: FDA-Public Use
  Company Number: None

PATIENT
  Age: 5 Year
  Sex: Male

DRUGS (2)
  1. EPINEPHRINE. [Suspect]
     Active Substance: EPINEPHRINE
  2. HYPODERMIC NEEDLE?PRO [Suspect]
     Active Substance: DEVICE

REACTIONS (3)
  - Needle issue [None]
  - Injection site extravasation [None]
  - Device malfunction [None]

NARRATIVE: CASE EVENT DATE: 20210223
